FAERS Safety Report 12175731 (Version 1)
Quarter: 2016Q1

REPORT INFORMATION
  Report Type: Spontaneous
  Country: US (occurrence: US)
  Receive Date: 20160314
  Receipt Date: 20160314
  Transmission Date: 20160526
  Serious: Yes (Other)
  Sender: FDA-Public Use
  Company Number: US-SA-2016SA050539

PATIENT
  Age: 64 Year
  Sex: Female

DRUGS (10)
  1. CELEBREX [Concomitant]
     Active Substance: CELECOXIB
  2. NAMENDA [Concomitant]
     Active Substance: MEMANTINE HYDROCHLORIDE
  3. COUMADIN [Concomitant]
     Active Substance: WARFARIN SODIUM
  4. TOPROL XL [Concomitant]
     Active Substance: METOPROLOL SUCCINATE
  5. AMPYRA [Concomitant]
     Active Substance: DALFAMPRIDINE
  6. GRALISE [Concomitant]
     Active Substance: GABAPENTIN
  7. GABAPENTIN. [Concomitant]
     Active Substance: GABAPENTIN
  8. AUBAGIO [Suspect]
     Active Substance: TERIFLUNOMIDE
     Indication: MULTIPLE SCLEROSIS
     Route: 048
  9. BACLOFEN. [Concomitant]
     Active Substance: BACLOFEN
  10. NUVIGIL [Concomitant]
     Active Substance: ARMODAFINIL

REACTIONS (4)
  - Fall [Unknown]
  - Muscular weakness [Unknown]
  - Influenza [Unknown]
  - Walking aid user [Unknown]
